FAERS Safety Report 23596138 (Version 2)
Quarter: 2024Q1

REPORT INFORMATION
  Report Type: Spontaneous
  Country: US (occurrence: US)
  Receive Date: 20240305
  Receipt Date: 20240307
  Transmission Date: 20240409
  Serious: Yes (Hospitalization, Other)
  Sender: FDA-Public Use
  Company Number: US-PFIZER INC-PV202300125541

PATIENT
  Age: 65 Year
  Sex: Female

DRUGS (1)
  1. IBRANCE [Suspect]
     Active Substance: PALBOCICLIB
     Dosage: 125 MG TABLET

REACTIONS (3)
  - Clostridium difficile infection [Not Recovered/Not Resolved]
  - Neoplasm progression [Unknown]
  - Illness [Unknown]

NARRATIVE: CASE EVENT DATE: 20240301
